FAERS Safety Report 25761409 (Version 1)
Quarter: 2025Q3

REPORT INFORMATION
  Report Type: Spontaneous
  Country: US (occurrence: US)
  Receive Date: 20250904
  Receipt Date: 20250904
  Transmission Date: 20251020
  Serious: Yes (Other)
  Sender: BAYER HEALTHCARE PHARMACEUTICALS INC.
  Company Number: US-BAYER-2025A113442

PATIENT
  Sex: Female

DRUGS (1)
  1. CIPRO [Suspect]
     Active Substance: CIPROFLOXACIN HYDROCHLORIDE
     Indication: Urinary tract infection
     Route: 048

REACTIONS (11)
  - Disability [Unknown]
  - Suicidal ideation [None]
  - Memory impairment [Unknown]
  - Burning sensation [None]
  - Insomnia [None]
  - Pain [None]
  - Depression [None]
  - Pain in extremity [None]
  - Disorientation [None]
  - Confusional state [None]
  - Nightmare [None]
